FAERS Safety Report 6026587-3 (Version None)
Quarter: 2008Q4

REPORT INFORMATION
  Report Type: 
  Country: None (occurrence: None)
  Receive Date: 20081231
  Receipt Date: 20081222
  Transmission Date: 20090506
  Serious: Yes (Other)
  Sender: FDA-Public Use
  Company Number: 038770

PATIENT
  Age: 59 Year
  Sex: Male

DRUGS (1)
  1. AMIODARONE HCL [Suspect]

REACTIONS (4)
  - INTERSTITIAL LUNG DISEASE [None]
  - MALAISE [None]
  - PULMONARY FIBROSIS [None]
  - PULMONARY TOXICITY [None]
